FAERS Safety Report 4411395-7 (Version None)
Quarter: 2004Q3

REPORT INFORMATION
  Report Type: 
  Country: None (occurrence: None)
  Receive Date: 20040727
  Receipt Date: 20040714
  Transmission Date: 20050211
  Serious: Yes (Life-Threatening)
  Sender: FDA-Public Use
  Company Number: SUS1-2004-00422

PATIENT
  Age: 65 Year
  Sex: Male

DRUGS (1)
  1. CARBATROL [Suspect]

REACTIONS (1)
  - DRUG HYPERSENSITIVITY [None]
